FAERS Safety Report 5159271-9 (Version None)
Quarter: 2006Q4

REPORT INFORMATION
  Report Type: 
  Country: None (occurrence: None)
  Receive Date: 20061120
  Receipt Date: 20061106
  Transmission Date: 20070319
  Serious: Yes (Hospitalization)
  Sender: FDA-Public Use
  Company Number: WAES 0611DEU00018

PATIENT
  Age: 67 Year
  Sex: Male

DRUGS (7)
  1. COZAAR [Suspect]
     Indication: CARDIAC FAILURE CONGESTIVE
     Dosage: PO
     Route: 048
     Dates: start: 20040203
  2. ASPIRIN [Concomitant]
  3. DICLOFENAC SODIUM [Concomitant]
  4. LEVOTHYROXINE SODIUM [Concomitant]
  5. NEBIVOLOL HCL [Concomitant]
  6. PRAVASTATIN SODIUM [Concomitant]
  7. TAMSULOSIN HCL [Concomitant]

REACTIONS (2)
  - HIP DYSPLASIA [None]
  - OSTEOARTHRITIS [None]
